FAERS Safety Report 8552153 (Version 3)
Quarter: 2012Q4

REPORT INFORMATION
  Report Type: 
  Country: US (occurrence: US)
  Receive Date: 20120508
  Receipt Date: 20121128
  Transmission Date: 20130627
  Serious: Yes (Hospitalization)
  Sender: FDA-Public Use
  Company Number: US-GLAXOSMITHKLINE-A0845241A

PATIENT
  Age: 49 Year
  Sex: Male
  Weight: 119.5 kg

DRUGS (4)
  1. AVANDIA [Suspect]
     Indication: DIABETES MELLITUS
     Dosage: 8MG Per day
     Route: 048
     Dates: start: 20010702, end: 2010
  2. LIPITOR [Concomitant]
  3. LOTENSIN [Concomitant]
  4. GLUCOPHAGE [Concomitant]

REACTIONS (4)
  - Cerebrovascular accident [Unknown]
  - Myocardial infarction [Unknown]
  - Cardiac failure congestive [Unknown]
  - Ventricular fibrillation [Unknown]
